FAERS Safety Report 5180956-2 (Version None)
Quarter: 2006Q4

REPORT INFORMATION
  Report Type: 
  Country: None (occurrence: None)
  Receive Date: 20061214
  Receipt Date: 20061214
  Transmission Date: 20070319
  Serious: Yes (Hospitalization)
  Sender: FDA-Public Use
  Company Number: None

PATIENT
  Sex: Female
  Weight: 51.7 kg

DRUGS (5)
  1. CYCLOPHOSPHAMIDE [Suspect]
     Dosage: 1800 MG
     Dates: end: 20060524
  2. DAUNORUBICIN HCL [Suspect]
     Dosage: 360 MG
     Dates: end: 20060526
  3. DEXAMETHASONE [Suspect]
     Dosage: 112.5 MG
     Dates: end: 20060531
  4. ELSPAR [Suspect]
     Dosage: 18000 UNIT
     Dates: end: 20060601
  5. VINCRISTINE SULFATE [Suspect]
     Dosage: 4 MG
     Dates: end: 20060531

REACTIONS (7)
  - GALLBLADDER DISORDER [None]
  - HYPOTENSION [None]
  - HYPOVOLAEMIA [None]
  - HYPOXIA [None]
  - ISCHAEMIA [None]
  - LARGE INTESTINE PERFORATION [None]
  - NECROTISING COLITIS [None]
